FAERS Safety Report 6565942-X (Version None)
Quarter: 2010Q1

REPORT INFORMATION
  Report Type: 
  Country: None (occurrence: None)
  Receive Date: 20100129
  Receipt Date: 20100129
  Transmission Date: 20100710
  Serious: Yes (Other)
  Sender: FDA-Public Use
  Company Number: None

PATIENT
  Age: 24 Year
  Sex: Male
  Weight: 72.5755 kg

DRUGS (1)
  1. PROCHLORPERAZINE 10MG [Suspect]
     Indication: GASTROENTERITIS VIRAL
     Dosage: 10MG ONCE EVERY 6 HOURS PO
     Route: 048
     Dates: start: 20100126, end: 20100128

REACTIONS (4)
  - FEELING JITTERY [None]
  - INSOMNIA [None]
  - MUSCULOSKELETAL STIFFNESS [None]
  - VISION BLURRED [None]
